FAERS Safety Report 7577313-8 (Version None)
Quarter: 2011Q2

REPORT INFORMATION
  Report Type: 
  Country: None (occurrence: None)
  Receive Date: 20110628
  Receipt Date: 20110520
  Transmission Date: 20111010
  Serious: Yes (Hospitalization, Other)
  Sender: FDA-Public Use
  Company Number: US-BAYER-201030378NA

PATIENT
  Age: 18 Year
  Sex: Female
  Weight: 52 kg

DRUGS (4)
  1. YAZ [Suspect]
     Indication: PREMENSTRUAL SYNDROME
     Dosage: UNK UNK, UNK
     Route: 048
     Dates: start: 20070101, end: 20090101
  2. WELLBUTRIN XL [Concomitant]
     Dosage: 300 MG, UNK
     Route: 048
  3. XANAX [Concomitant]
     Indication: ANXIETY
     Dosage: 0.5 MG, UNK
     Route: 048
  4. LOESTRIN 1.5/30 [Concomitant]
     Route: 048

REACTIONS (4)
  - DIARRHOEA [None]
  - BILIARY DYSKINESIA [None]
  - CHOLECYSTITIS [None]
  - ABDOMINAL PAIN [None]
